FAERS Safety Report 14315972 (Version 1)
Quarter: 2017Q4

REPORT INFORMATION
  Report Type: Spontaneous
  Country: FR (occurrence: FR)
  Receive Date: 20171221
  Receipt Date: 20171221
  Transmission Date: 20180321
  Serious: Yes (Death, Other)
  Sender: FDA-Public Use
  Company Number: FR-MYLANLABS-2017M1080240

PATIENT
  Age: 64 Year
  Sex: Male

DRUGS (3)
  1. ETOPOSIDE. [Suspect]
     Active Substance: ETOPOSIDE
     Indication: TRANSPLANT
     Dosage: UNK
     Route: 065
  2. MELPHALAN. [Suspect]
     Active Substance: MELPHALAN
     Indication: TRANSPLANT
     Dosage: UNK
     Route: 065
  3. ARACYTINE [Suspect]
     Active Substance: CYTARABINE
     Indication: TRANSPLANT
     Dosage: UNK
     Route: 065

REACTIONS (2)
  - Human herpesvirus 6 infection [Recovered/Resolved]
  - Septic shock [Fatal]
